FAERS Safety Report 8044002-5 (Version None)
Quarter: 2012Q1

REPORT INFORMATION
  Report Type: 
  Country: None (occurrence: None)
  Receive Date: 20120113
  Receipt Date: 20120105
  Transmission Date: 20120608
  Serious: Yes (Hospitalization)
  Sender: FDA-Public Use
  Company Number: GB-ELI_LILLY_AND_COMPANY-GB201201001674

PATIENT
  Age: 48 Year
  Sex: Female

DRUGS (1)
  1. FLUOXETINE [Suspect]
     Dosage: 20 MG, QD
     Route: 048
     Dates: start: 20111107, end: 20111220

REACTIONS (5)
  - ARRHYTHMIA [None]
  - PALPITATIONS [None]
  - PETIT MAL EPILEPSY [None]
  - SYNCOPE [None]
  - EXTRASYSTOLES [None]
